FAERS Safety Report 8299320 (Version 2)
Quarter: 2013Q2

REPORT INFORMATION
  Report Type: Report from Study
  Country: CA (occurrence: CA)
  Receive Date: 20111219
  Receipt Date: 20130426
  Transmission Date: 20140414
  Serious: Yes (Other)
  Sender: FDA-Public Use
  Company Number: CA-ROCHE-1022307

PATIENT
  Age: 59 Year
  Sex: Female
  Weight: 63.56 kg

DRUGS (11)
  1. RITUXIMAB [Suspect]
     Indication: RHEUMATOID ARTHRITIS
     Route: 042
  2. ALTACE [Concomitant]
     Route: 065
  3. ASPIRIN [Concomitant]
     Route: 065
  4. PREDNISONE [Concomitant]
     Route: 065
  5. LOSEC (CANADA) [Concomitant]
     Route: 065
  6. FOLIC ACID [Concomitant]
     Route: 065
  7. VITAMIN C [Concomitant]
     Route: 065
  8. TYLENOL ARTHRITIS [Concomitant]
     Route: 065
  9. MICARDIS [Concomitant]
     Route: 065
  10. TECTA [Concomitant]
     Route: 065
  11. HYDREA [Concomitant]
     Route: 065
     Dates: start: 20110304

REACTIONS (2)
  - Polycythaemia vera [Not Recovered/Not Resolved]
  - Dry gangrene [Not Recovered/Not Resolved]
